FAERS Safety Report 4632012-7 (Version None)
Quarter: 2005Q2

REPORT INFORMATION
  Report Type: 
  Country: None (occurrence: None)
  Receive Date: 20050325
  Receipt Date: 20041221
  Transmission Date: 20051028
  Serious: No
  Sender: FDA-Public Use
  Company Number: USA041183476

PATIENT
  Age: 78 Year
  Sex: Female
  Weight: 61 kg

DRUGS (3)
  1. FORTEO [Suspect]
     Indication: OSTEOPOROSIS
     Dosage: 20 UG/1 DAY
     Dates: start: 20041103
  2. CALCIUM GLUCONATE [Concomitant]
  3. FIORINAL [Concomitant]

REACTIONS (5)
  - BACK PAIN [None]
  - HEADACHE [None]
  - INCREASED TENDENCY TO BRUISE [None]
  - INJECTION SITE DERMATITIS [None]
  - INJECTION SITE HAEMORRHAGE [None]
